FAERS Safety Report 25140119 (Version 1)
Quarter: 2025Q1

REPORT INFORMATION
  Report Type: Spontaneous
  Country: US (occurrence: US)
  Receive Date: 20250331
  Receipt Date: 20250331
  Transmission Date: 20250409
  Serious: Yes (Hospitalization, Other)
  Sender: AMGEN
  Company Number: US-AMGEN-USASP2025059438

PATIENT
  Age: 79 Year
  Sex: Male

DRUGS (1)
  1. TAVNEOS [Suspect]
     Active Substance: AVACOPAN
     Indication: Product used for unknown indication
     Dosage: 10 MILLIGRAM, BID/ TWICE A DAY
     Route: 048

REACTIONS (2)
  - Haemoglobin decreased [Unknown]
  - Syncope [Unknown]

NARRATIVE: CASE EVENT DATE: 20250301
